FAERS Safety Report 4803761-2 (Version None)
Quarter: 2005Q4

REPORT INFORMATION
  Report Type: 
  Country: None (occurrence: None)
  Receive Date: 20051014
  Receipt Date: 20050927
  Transmission Date: 20060501
  Serious: Yes (Hospitalization)
  Sender: FDA-Public Use
  Company Number: RU-2005-017748

PATIENT
  Age: 22 Year
  Sex: Male

DRUGS (1)
  1. BETAFERON 250 UG, 500 AND COPAXONE(BETAFERON (SH Y 579E)) INJECTION, 2 [Suspect]
     Indication: MULTIPLE SCLEROSIS
     Dosage: 8 OR 16 MIU, EVERY 2D , SUBCUTANEOUS
     Route: 058
     Dates: start: 20050523

REACTIONS (2)
  - ASTHMA [None]
  - CONDITION AGGRAVATED [None]
